FAERS Safety Report 6737992-1 (Version None)
Quarter: 2010Q2

REPORT INFORMATION
  Report Type: 
  Country: None (occurrence: None)
  Receive Date: 20100524
  Receipt Date: 20100516
  Transmission Date: 20101027
  Serious: Yes (Other)
  Sender: FDA-Public Use
  Company Number: US-ROCHE-704061

PATIENT
  Sex: Male
  Weight: 81.8 kg

DRUGS (3)
  1. XELODA [Suspect]
     Indication: RECTAL CANCER STAGE III
     Dosage: 1500 MG IN THE MORNING AND 1500 MG IN THE EVENING
     Route: 048
     Dates: start: 20080417, end: 20080601
  2. XELODA [Suspect]
     Dosage: 2000 MG IN THE MORNING AND 2500 MG IN THE EVENING
     Route: 048
     Dates: start: 20081002, end: 20090201
  3. OXALIPLATIN [Suspect]
     Indication: RECTAL CANCER STAGE III
     Dosage: ROUTE: INTRAVENOUS (NOS), ONCE WEEKLY LASTED ABOUT THREE TO FOUR HOURS, FORM: INFUSION
     Route: 042
     Dates: start: 20080416, end: 20080601

REACTIONS (5)
  - CARDIAC FAILURE CONGESTIVE [None]
  - DYSPNOEA [None]
  - EMPHYSEMA [None]
  - INTERSTITIAL LUNG DISEASE [None]
  - NEUROPATHY PERIPHERAL [None]
